FAERS Safety Report 15392992 (Version 1)
Quarter: 2018Q3

REPORT INFORMATION
  Report Type: Spontaneous
  Country: TR (occurrence: TR)
  Receive Date: 20180917
  Receipt Date: 20180917
  Transmission Date: 20181010
  Serious: Yes (Life-Threatening, Hospitalization, Other)
  Sender: FDA-Public Use
  Company Number: TR-MYLANLABS-2018M1066455

PATIENT
  Age: 38 Year
  Sex: Female

DRUGS (11)
  1. BIPERIDEN [Concomitant]
     Active Substance: BIPERIDEN
     Indication: BEHAVIOURAL THERAPY
     Dosage: UNK
  2. HALOPERIDOL. [Concomitant]
     Active Substance: HALOPERIDOL
     Indication: BEHAVIOURAL THERAPY
     Dosage: UNK
  3. QUETIAPINE. [Interacting]
     Active Substance: QUETIAPINE
     Indication: BIPOLAR DISORDER
     Dosage: 900 MG, QD
  4. OLANZAPINE. [Interacting]
     Active Substance: OLANZAPINE
     Dosage: 30 UNK, UNK
  5. OLANZAPINE. [Interacting]
     Active Substance: OLANZAPINE
     Indication: BIPOLAR DISORDER
     Dosage: 40 MG, QD
  6. LORAZEPAM. [Concomitant]
     Active Substance: LORAZEPAM
     Indication: BEHAVIOURAL THERAPY
     Dosage: UNK
  7. QUETIAPINE. [Interacting]
     Active Substance: QUETIAPINE
     Dosage: 300 MG, QD
  8. OXCARBAZEPINE. [Interacting]
     Active Substance: OXCARBAZEPINE
     Indication: BIPOLAR DISORDER
     Dosage: 600 MG, QD
  9. VALPROIC ACID. [Suspect]
     Active Substance: VALPROIC ACID
     Indication: BIPOLAR DISORDER
     Dosage: 1000 MG, QD
     Route: 065
  10. OXCARBAZEPINE. [Interacting]
     Active Substance: OXCARBAZEPINE
     Indication: BEHAVIOURAL THERAPY
     Dosage: 800 MG, QD
  11. ZUCLOPENTHIXOL [Concomitant]
     Active Substance: ZUCLOPENTHIXOL
     Indication: PRODUCT USED FOR UNKNOWN INDICATION
     Dosage: UNK

REACTIONS (8)
  - Hyperammonaemic encephalopathy [Recovered/Resolved]
  - Drug interaction [Unknown]
  - Psychomotor hyperactivity [Recovered/Resolved]
  - Logorrhoea [Recovered/Resolved]
  - Insomnia [Recovered/Resolved]
  - Lethargy [Recovered/Resolved]
  - Loss of consciousness [Recovered/Resolved]
  - Sedation [Recovered/Resolved]
